FAERS Safety Report 18305603 (Version 1)
Quarter: 2020Q3

REPORT INFORMATION
  Report Type: Spontaneous
  Country: US (occurrence: US)
  Receive Date: 20200923
  Receipt Date: 20200923
  Transmission Date: 20201103
  Serious: Yes (Hospitalization)
  Sender: FDA-Public Use
  Company Number: US-FRESENIUS MEDICAL CARE RENAL THERAPIES GROUP-FMC-2009-001106

PATIENT
  Age: 75 Year
  Sex: Female

DRUGS (3)
  1. DELFLEX WITH DEXTROSE 1.5% LOW MAGNESIUM LOW CALCIUM [Suspect]
     Active Substance: CALCIUM CHLORIDE\DEXTROSE\MAGNESIUM CHLORIDE\SODIUM CHLORIDE\SODIUM LACTATE
     Indication: END STAGE RENAL DISEASE
     Dosage: FILL VOLUME 2500 ML, 4 EXCHANGES, LAST FILL 1500 ML, 1 DAYTIME EXCHANGE 2000ML, DWELL TIME 2.5 HOURS
     Route: 033
     Dates: start: 20200803
  2. DELFLEX WITH DEXTROSE 4.25% LOW MAGNESIUM LOW CALCIUM [Suspect]
     Active Substance: CALCIUM CHLORIDE\DEXTROSE\MAGNESIUM CHLORIDE\SODIUM CHLORIDE\SODIUM LACTATE
     Indication: END STAGE RENAL DISEASE
     Dosage: FILL VOLUME 2500 ML, 4 EXCHANGES, LAST FILL 1500 ML, 1 DAYTIME EXCHANGE 2000ML, DWELL TIME 2.5 HOURS
     Route: 033
     Dates: start: 20200803
  3. DELFLEX WITH DEXTROSE 2.5% LOW MAGNESIUM LOW CALCIUM [Suspect]
     Active Substance: CALCIUM CHLORIDE\DEXTROSE\MAGNESIUM CHLORIDE\SODIUM CHLORIDE\SODIUM LACTATE
     Indication: END STAGE RENAL DISEASE
     Dosage: FILL VOLUME 2500 ML, 4 EXCHANGES, LAST FILL 1500 ML, 1 DAYTIME EXCHANGE 2000ML, DWELL TIME 2.5 HOURS
     Route: 033
     Dates: start: 20200803

REACTIONS (1)
  - Pleural effusion [Unknown]
